FAERS Safety Report 5171625-3 (Version None)
Quarter: 2006Q4

REPORT INFORMATION
  Report Type: 
  Country: None (occurrence: None)
  Receive Date: 20061213
  Receipt Date: 20061129
  Transmission Date: 20070319
  Serious: Yes (Death, Hospitalization)
  Sender: FDA-Public Use
  Company Number: US-ROCHE-473412

PATIENT
  Age: 54 Year
  Sex: Female
  Weight: 47.2 kg

DRUGS (13)
  1. BONIVA [Suspect]
     Indication: OSTEOPENIA
     Route: 042
     Dates: start: 20060515, end: 20061121
  2. BOWEL PREP NOS [Suspect]
     Indication: THERAPEUTIC PROCEDURE
     Dosage: REPORTED AS BOWEL CLEANSING.
     Route: 048
     Dates: start: 20061127, end: 20061127
  3. ACCUPRIL [Concomitant]
  4. CARDIZEM CD [Concomitant]
  5. CREON [Concomitant]
  6. COMBIVENT [Concomitant]
     Route: 055
  7. OXYCONTIN [Concomitant]
  8. PERCOCET [Concomitant]
  9. NEURONTIN [Concomitant]
  10. LANTUS [Concomitant]
  11. REGULAR INSULIN [Concomitant]
  12. PLAVIX [Concomitant]
  13. ZOCOR [Concomitant]

REACTIONS (9)
  - ACUTE CORONARY SYNDROME [None]
  - APPENDIX DISORDER [None]
  - CHEST PAIN [None]
  - COLITIS [None]
  - ELECTROLYTE IMBALANCE [None]
  - GENERALISED OEDEMA [None]
  - MYOCARDIAL INFARCTION [None]
  - OEDEMA PERIPHERAL [None]
  - PAIN IN EXTREMITY [None]
